FAERS Safety Report 7802325-6 (Version None)
Quarter: 2011Q4

REPORT INFORMATION
  Report Type: 
  Country: None (occurrence: None)
  Receive Date: 20111005
  Receipt Date: 20110922
  Transmission Date: 20120403
  Serious: Yes (Hospitalization)
  Sender: FDA-Public Use
  Company Number: 2011-3591

PATIENT
  Age: 64 Year
  Sex: Male
  Weight: 76 kg

DRUGS (13)
  1. ALLOPURINOL [Concomitant]
  2. LANTUS [Concomitant]
  3. DYSPORT [Suspect]
     Indication: MUSCLE SPASTICITY
     Dosage: 1300 UNITS (1300 UNITS, SINGLE CYCLE), INTRAMUSCULAR
     Route: 030
     Dates: start: 20110628, end: 20110628
  4. PERINDOPRIL ERBUMINE [Concomitant]
  5. EUPRESSYL (URAPIDIL) [Concomitant]
  6. NICARDIPINE HYDROCHLORIDE [Concomitant]
  7. PAROXETINE HYDROCHLORIDE [Concomitant]
  8. ATORVASTATIN CALCIUM [Concomitant]
  9. HYTACAND (BLOPRESS PLUS) [Concomitant]
  10. PRAXILENE (NAFTIDROFURYL OXALATE) [Concomitant]
  11. REPAGLINIDE [Concomitant]
  12. GLUCOPHAGE [Concomitant]
  13. PLAVIX [Concomitant]

REACTIONS (5)
  - CATAPLEXY [None]
  - MALAISE [None]
  - ASTHENIA [None]
  - LOSS OF CONSCIOUSNESS [None]
  - FALL [None]
